FAERS Safety Report 6983049-4 (Version None)
Quarter: 2010Q3

REPORT INFORMATION
  Report Type: 
  Country: None (occurrence: None)
  Receive Date: 20100914
  Receipt Date: 20100621
  Transmission Date: 20110219
  Serious: No
  Sender: FDA-Public Use
  Company Number: US-PFIZER INC-2010048566

PATIENT
  Age: 45 Year
  Sex: Female
  Weight: 68.027 kg

DRUGS (3)
  1. LYRICA [Suspect]
     Indication: FIBROMYALGIA
     Dosage: 100 MG, DAILY
     Dates: start: 20080101
  2. LYRICA [Suspect]
     Dosage: NEW REFILL
     Route: 048
     Dates: start: 20100415
  3. IBUPROFEN [Concomitant]
     Indication: HEADACHE

REACTIONS (1)
  - DRUG INEFFECTIVE [None]
